FAERS Safety Report 18725925 (Version 7)
Quarter: 2021Q2

REPORT INFORMATION
  Report Type: Report from Study
  Country: DK (occurrence: DK)
  Receive Date: 20210111
  Receipt Date: 20210422
  Transmission Date: 20210717
  Serious: Yes (Hospitalization)
  Sender: FDA-Public Use
  Company Number: DK-ROCHE-2740510

PATIENT
  Age: 48 Year
  Sex: Male
  Weight: 92.5 kg

DRUGS (33)
  1. RO7082859 (CD20/C3 T?CELL BISPECIFIC MAB) [Suspect]
     Active Substance: GLOFITAMAB
     Indication: DIFFUSE LARGE B-CELL LYMPHOMA
     Dosage: MOST RECENT DOSE (DOSE: 2.5 MG AND TOTAL VOLUME: 25 ML) PRIOR TO UPPER AIRWAY INFECTION 22/DEC/2020
     Route: 042
     Dates: start: 20201222
  2. ACETYLSALICYLSYRE [Concomitant]
     Active Substance: ASPIRIN
     Dates: start: 20200711
  3. DOMPERIDON [Concomitant]
     Active Substance: DOMPERIDONE
     Dates: start: 20201111
  4. TINZAPARIN [Concomitant]
     Active Substance: TINZAPARIN
     Dates: start: 20210102
  5. ZOPICLON [Concomitant]
     Active Substance: ZOPICLONE
     Indication: INSOMNIA
     Dates: start: 20201113
  6. ATORVASTATIN [Concomitant]
     Active Substance: ATORVASTATIN
     Indication: BLOOD CHOLESTEROL INCREASED
     Dates: start: 20200714
  7. PEGFILGRASTIM [Concomitant]
     Active Substance: PEGFILGRASTIM
     Dates: start: 20201218, end: 20201218
  8. LAXOBERAL [Concomitant]
     Active Substance: SODIUM PICOSULFATE
     Indication: CONSTIPATION PROPHYLAXIS
     Dates: start: 2015
  9. DOXORUBICIN [Suspect]
     Active Substance: DOXORUBICIN
     Indication: DIFFUSE LARGE B-CELL LYMPHOMA
     Dosage: ON 15/DEC/2020 AT 2:42 PM TO AT 2.55 PM, HE RECEIVED MOST RECENT DOSE 50 MG/M2 AND VOLUME 100 ML OF
     Route: 042
     Dates: start: 20201111
  10. MACROGOL [Concomitant]
     Active Substance: POLYETHYLENE GLYCOLS
     Indication: CONSTIPATION
     Dates: start: 20201117
  11. METOPROLOLSUCCINAT [Concomitant]
     Active Substance: METOPROLOL SUCCINATE
     Dates: start: 20200909
  12. ONDANSETRON [Concomitant]
     Active Substance: ONDANSETRON
     Route: 048
     Dates: start: 20201215, end: 20201215
  13. DIAZEPAM. [Concomitant]
     Active Substance: DIAZEPAM
     Indication: INSOMNIA
     Dates: start: 20201231, end: 20201231
  14. METHYLPREDNISOLONE. [Suspect]
     Active Substance: METHYLPREDNISOLONE
     Indication: DIFFUSE LARGE B-CELL LYMPHOMA
     Dosage: ON 15/DEC/2020 AT 10.35 AM, HE RECEIVED MOST RECENT DOSE 80 MG OF METHYLPREDNISOLONE PRIOUR TO SAE.
     Route: 048
     Dates: start: 20201215
  15. DEXAMETHASONE. [Concomitant]
     Active Substance: DEXAMETHASONE
     Route: 042
     Dates: start: 20201222, end: 20201222
  16. CETIRIZIN [Concomitant]
     Active Substance: CETIRIZINE HYDROCHLORIDE
     Route: 048
     Dates: start: 20201222, end: 20201222
  17. PEGFILGRASTIM [Concomitant]
     Active Substance: PEGFILGRASTIM
     Dates: start: 20201114
  18. VINCRISTINE [Suspect]
     Active Substance: VINCRISTINE
     Indication: DIFFUSE LARGE B-CELL LYMPHOMA
     Dosage: ON 15/DEC/2020 AT 1:45 PM TO AT 1.50 PM, HE RECEIVED MOST RECENT DOSE 1.4 MG/M2 AND VOLUME 52 ML OF
     Route: 042
     Dates: start: 20201111
  19. PREDNISOLONE. [Suspect]
     Active Substance: PREDNISOLONE
     Indication: DIFFUSE LARGE B-CELL LYMPHOMA
     Dosage: ON 15/NOV/2020 AT 7.45 AM, HE RECEIVED MOST RECENT DOSE OF PREDNISOLONE PRIOR TO BOTH EVENTS?ON 19/D
     Route: 048
     Dates: start: 20201111
  20. CIPROFLOXACIN. [Concomitant]
     Active Substance: CIPROFLOXACIN
     Indication: PAIN
     Dates: start: 20201120, end: 20201129
  21. CLOPIDOGREL [Concomitant]
     Active Substance: CLOPIDOGREL BISULFATE
     Dates: start: 20200930
  22. AMIODARON [Concomitant]
     Active Substance: AMIODARONE
     Indication: ARRHYTHMIA
     Dates: start: 20200718
  23. ONDANSETRON [Concomitant]
     Active Substance: ONDANSETRON
     Dates: start: 20201111
  24. RITUXIMAB. [Suspect]
     Active Substance: RITUXIMAB
     Indication: DIFFUSE LARGE B-CELL LYMPHOMA
     Dosage: ON 15/DEC/2020 AT 11:35 AM TO 1:10 PM, HE RECEIVED MOST RECENT DOSE PRIOR TO EVENTS 375 MG/M2 AND VO
     Route: 041
     Dates: start: 20201110
  25. AZITHROMYCIN ANHYDROUS. [Concomitant]
     Active Substance: AZITHROMYCIN ANHYDROUS
     Indication: PAIN
     Dates: start: 20201117, end: 20201119
  26. PANODIL [Concomitant]
     Active Substance: ACETAMINOPHEN
     Route: 048
     Dates: start: 20201215, end: 20201215
  27. ACICLOVIR [Concomitant]
     Active Substance: ACYCLOVIR
     Dates: start: 20201111
  28. CYCLOPHOSPHAMIDE. [Suspect]
     Active Substance: CYCLOPHOSPHAMIDE
     Indication: DIFFUSE LARGE B-CELL LYMPHOMA
     Dosage: ON 15/DEC/2020 AT 2:05 PM TO AT 2.25 PM, HE RECEIVED MOST RECENT DOSE 750 MG/M2 AND VOLUME 120 ML OF
     Route: 042
     Dates: start: 20201111
  29. DEXAMETHASONE. [Concomitant]
     Active Substance: DEXAMETHASONE
     Route: 042
     Dates: start: 20201228
  30. PARACETAMOL [Concomitant]
     Active Substance: ACETAMINOPHEN
     Route: 048
     Dates: start: 20201222, end: 20201222
  31. PARACETAMOL [Concomitant]
     Active Substance: ACETAMINOPHEN
     Route: 048
     Dates: start: 20201228
  32. CETIRIZIN [Concomitant]
     Active Substance: CETIRIZINE HYDROCHLORIDE
     Route: 048
     Dates: start: 20201215, end: 20201215
  33. CETIRIZIN [Concomitant]
     Active Substance: CETIRIZINE HYDROCHLORIDE
     Route: 048
     Dates: start: 20201228

REACTIONS (2)
  - Upper respiratory tract infection [Recovered/Resolved]
  - COVID-19 [Recovered/Resolved]

NARRATIVE: CASE EVENT DATE: 20201219
